FAERS Safety Report 4389726-6 (Version None)
Quarter: 2004Q2

REPORT INFORMATION
  Report Type: 
  Country: None (occurrence: None)
  Receive Date: 20040629
  Receipt Date: 20030724
  Transmission Date: 20050107
  Serious: Yes (Hospitalization)
  Sender: FDA-Public Use
  Company Number: US-JNJFOC-20030706270

PATIENT
  Age: 63 Year
  Sex: Female

DRUGS (7)
  1. DURAGESIC [Suspect]
     Indication: PAIN
     Dosage: 50 UG/HR, 1 IN 72 HOUR, TRANSDERMAL
     Route: 062
     Dates: start: 20030501
  2. ESTRADIOL [Concomitant]
  3. LASIX [Concomitant]
  4. AVANDIA [Concomitant]
  5. GLUCOPHAGE [Concomitant]
  6. LOPID [Concomitant]
  7. NEURONTIN [Concomitant]

REACTIONS (2)
  - DYSPNOEA [None]
  - SOMNOLENCE [None]
